FAERS Safety Report 13777955 (Version 1)
Quarter: 2017Q3

REPORT INFORMATION
  Report Type: Report from Study
  Country: BE (occurrence: BE)
  Receive Date: 20170721
  Receipt Date: 20170721
  Transmission Date: 20171127
  Serious: Yes (Other)
  Sender: FDA-Public Use
  Company Number: BE-EMD SERONO-8051588

PATIENT
  Sex: Female

DRUGS (1)
  1. REBIF [Suspect]
     Active Substance: INTERFERON BETA-1A
     Indication: MULTIPLE SCLEROSIS
     Route: 058
     Dates: start: 20100811

REACTIONS (9)
  - Lymphopenia [Recovered/Resolved]
  - Influenza like illness [Unknown]
  - Renal function test abnormal [Recovered/Resolved]
  - Thyroid function test abnormal [Recovered/Resolved]
  - Insomnia [Unknown]
  - Injection site induration [Unknown]
  - Visual impairment [Unknown]
  - Paraesthesia [Unknown]
  - Blood cholesterol increased [Unknown]

NARRATIVE: CASE EVENT DATE: 2015
